FAERS Safety Report 17750951 (Version 3)
Quarter: 2020Q3

REPORT INFORMATION
  Report Type: Report from Study
  Country: DE (occurrence: DE)
  Receive Date: 20200506
  Receipt Date: 20200902
  Transmission Date: 20201102
  Serious: Yes (Other)
  Sender: FDA-Public Use
  Company Number: PHHO2010DE021865

PATIENT
  Age: 49 Year
  Sex: Female
  Weight: 81 kg

DRUGS (4)
  1. LAPATINIB DITOSYLATE [Suspect]
     Active Substance: LAPATINIB DITOSYLATE
     Indication: BREAST CANCER
     Dosage: UNK
     Route: 048
     Dates: start: 20091004
  2. ZOSTEX [Concomitant]
     Active Substance: BRIVUDINE
     Indication: HERPES ZOSTER
     Dosage: 125 MG, QD
     Route: 048
     Dates: start: 20100328, end: 20100404
  3. DICLOFENAC [Concomitant]
     Active Substance: DICLOFENAC
     Indication: HERPES ZOSTER
     Dosage: 50 MG, PRN
     Route: 048
     Dates: start: 20091026
  4. DOCETAXEL. [Suspect]
     Active Substance: DOCETAXEL
     Indication: BREAST CANCER
     Dosage: 75 MG/M2, QW3
     Route: 042
     Dates: start: 20091004, end: 20091116

REACTIONS (1)
  - Gamma-glutamyltransferase increased [Not Recovered/Not Resolved]

NARRATIVE: CASE EVENT DATE: 20100209
